FAERS Safety Report 5103196-1 (Version None)
Quarter: 2006Q3

REPORT INFORMATION
  Report Type: 
  Country: None (occurrence: None)
  Receive Date: 20060912
  Receipt Date: 20060912
  Transmission Date: 20061208
  Serious: Yes (Hospitalization)
  Sender: FDA-Public Use
  Company Number: None

PATIENT
  Age: 69 Year
  Sex: Female
  Weight: 54.4316 kg

DRUGS (11)
  1. PEG-INTRON [Suspect]
     Indication: HEPATITIS C
     Dosage: 120 MCG/0.5 ML WEEKLY SC
     Route: 058
     Dates: start: 20060209
  2. RIBAVIRIN [Suspect]
     Dosage: 200 MG 1000 MG DAILY ORAL
     Route: 048
     Dates: start: 20060504
  3. PREMARIN [Concomitant]
  4. SYNTHROID [Concomitant]
  5. CELEXA [Concomitant]
  6. ACIPHEN [Concomitant]
  7. VICODIN [Concomitant]
  8. ARANESP [Concomitant]
  9. NYSTATIN [Concomitant]
  10. PREVACID [Concomitant]
  11. RESTORIL [Concomitant]

REACTIONS (1)
  - PANCREATITIS [None]
